FAERS Safety Report 12506493 (Version 14)
Quarter: 2019Q2

REPORT INFORMATION
  Report Type: Spontaneous
  Country: US (occurrence: US)
  Receive Date: 20160628
  Receipt Date: 20190611
  Transmission Date: 20190711
  Serious: No
  Sender: FDA-Public Use
  Company Number: US-ACTELION-A-NJ2016-137761

PATIENT
  Age: 66 Year
  Sex: Female
  Weight: 176.87 kg

DRUGS (4)
  1. TYVASO [Suspect]
     Active Substance: TREPROSTINIL
     Indication: PRODUCT USED FOR UNKNOWN INDICATION
     Route: 065
  2. TRACLEER [Suspect]
     Active Substance: BOSENTAN
     Indication: PULMONARY ARTERIAL HYPERTENSION
     Dosage: 125 MG, BID
     Route: 048
     Dates: start: 20120308
  3. ADEMPAS [Concomitant]
     Active Substance: RIOCIGUAT
  4. TRACLEER [Suspect]
     Active Substance: BOSENTAN
     Dosage: 125 MG, BID
     Route: 048

REACTIONS (22)
  - Lower respiratory tract congestion [Unknown]
  - Nasopharyngitis [Unknown]
  - Sluggishness [Unknown]
  - Oxygen saturation decreased [Unknown]
  - Somnolence [Unknown]
  - Fatigue [Unknown]
  - Nasal congestion [Unknown]
  - Depressed mood [Unknown]
  - Ear infection [Unknown]
  - Heart rate increased [Unknown]
  - Hypertension [Unknown]
  - Influenza like illness [Unknown]
  - Oedema peripheral [Unknown]
  - Headache [Unknown]
  - Aortic stenosis [Unknown]
  - Malaise [Unknown]
  - Wheezing [Unknown]
  - Sinusitis [Unknown]
  - Cough [Unknown]
  - Nausea [Recovered/Resolved]
  - Bronchitis [Unknown]
  - Fluid retention [Unknown]

NARRATIVE: CASE EVENT DATE: 20160607
